FAERS Safety Report 21074214 (Version 1)
Quarter: 2022Q3

REPORT INFORMATION
  Report Type: Other
  Country: CN (occurrence: None)
  Receive Date: 20220713
  Receipt Date: 20220713
  Transmission Date: 20221027
  Serious: Yes (Death, Other)
  Sender: FDA-Public Use
  Company Number: CN-ROCHE-3132431

PATIENT
  Age: 55 Year
  Sex: Male

DRUGS (3)
  1. BEVACIZUMAB [Suspect]
     Active Substance: BEVACIZUMAB
     Indication: Lung neoplasm malignant
     Dosage: DAY 1 (D1)?ONCE EVERY 3 WEEKS (Q3W) FOR SIX CYCLES
     Route: 065
  2. PEMETREXED [Suspect]
     Active Substance: PEMETREXED
     Indication: Lung neoplasm malignant
     Dosage: DAY 1?ONCE EVERY 3 WEEKS (Q3W) FOR SIX CYCLES
     Route: 065
  3. CARBOPLATIN [Concomitant]
     Active Substance: CARBOPLATIN
     Indication: Lung neoplasm malignant
     Dosage: DAY 1?ONCE EVERY 3 WEEKS (Q3W) FOR SIX CYCLES

REACTIONS (6)
  - Respiratory failure [Fatal]
  - Arterial thrombosis [Fatal]
  - Venous thrombosis [Fatal]
  - Cerebral infarction [Unknown]
  - Pulmonary embolism [Unknown]
  - Disease progression [Unknown]
